FAERS Safety Report 7992301-5 (Version None)
Quarter: 2011Q4

REPORT INFORMATION
  Report Type: 
  Country: None (occurrence: None)
  Receive Date: 20111219
  Receipt Date: 20110630
  Transmission Date: 20120403
  Serious: No
  Sender: FDA-Public Use
  Company Number: US-ASTRAZENECA-2011SE39268

PATIENT
  Age: 70 Year
  Sex: Female
  Weight: 73.5 kg

DRUGS (1)
  1. CRESTOR [Suspect]
     Route: 048
     Dates: start: 20101201, end: 20110501

REACTIONS (2)
  - DRUG DOSE OMISSION [None]
  - PRURITUS GENERALISED [None]
